FAERS Safety Report 20894043 (Version 1)
Quarter: 2022Q2

REPORT INFORMATION
  Report Type: Spontaneous
  Country: TR (occurrence: TR)
  Receive Date: 20220531
  Receipt Date: 20220531
  Transmission Date: 20220720
  Serious: Yes (Other)
  Sender: FDA-Public Use
  Company Number: TR-ELI_LILLY_AND_COMPANY-TR202205008357

PATIENT
  Age: 41 Year
  Sex: Male

DRUGS (2)
  1. IXEKIZUMAB [Suspect]
     Active Substance: IXEKIZUMAB
     Indication: Product used for unknown indication
     Dosage: UNK, UNKNOWN
     Route: 065
  2. AMLODIPINE [Concomitant]
     Active Substance: AMLODIPINE BESYLATE
     Indication: Hypertension
     Dosage: UNK, UNKNOWN

REACTIONS (7)
  - Aortic aneurysm rupture [Unknown]
  - Asthenia [Unknown]
  - Sensory loss [Unknown]
  - Hepatic steatosis [Unknown]
  - Hypertriglyceridaemia [Unknown]
  - Hyperuricaemia [Unknown]
  - Blood creatinine increased [Unknown]
